FAERS Safety Report 10233482 (Version 2)
Quarter: 2014Q2

REPORT INFORMATION
  Report Type: Spontaneous
  Country: CN (occurrence: None)
  Receive Date: 20140610
  Receipt Date: 20140627
  Transmission Date: 20141212
  Serious: Yes (Life-Threatening, Hospitalization)
  Sender: FDA-Public Use
  Company Number: CH-DEXPHARM-20140321

PATIENT
  Age: 78 Year
  Sex: Female

DRUGS (8)
  1. OMEPRAZOLE [Suspect]
  2. CALCIUM/ VITAMIN D2 [Concomitant]
  3. IBUPROFEN [Concomitant]
  4. LERCANIDIPINE [Concomitant]
  5. METOPROLOL [Concomitant]
  6. PERINDOPRIL [Concomitant]
  7. VITAMIN D3 [Concomitant]
  8. ZOLPIDEM [Concomitant]

REACTIONS (14)
  - Hypocalcaemia [None]
  - Hypokalaemia [None]
  - Hypomagnesaemia [None]
  - General physical health deterioration [None]
  - Cognitive disorder [None]
  - Generalised tonic-clonic seizure [None]
  - Electrocardiogram QT prolonged [None]
  - Electrocardiogram ST-T change [None]
  - Cerebral microangiopathy [None]
  - Apraxia [None]
  - Fatigue [None]
  - Dizziness [None]
  - Generalised tonic-clonic seizure [None]
  - Blood pressure increased [None]
